FAERS Safety Report 8549494-0 (Version None)
Quarter: 2012Q3

REPORT INFORMATION
  Report Type: 
  Country: None (occurrence: None)
  Receive Date: 20120730
  Receipt Date: 20120716
  Transmission Date: 20120928
  Serious: Yes (Other)
  Sender: FDA-Public Use
  Company Number: DE-MYLANLABS-2012S1014600

PATIENT
  Age: 62 Year
  Sex: Female

DRUGS (3)
  1. PACLITAXEL [Suspect]
     Indication: ACRAL LENTIGINOUS MELANOMA STAGE UNSPECIFIED
     Dosage: PACLITAXEL 200 MG/M2 EVERY 3 WEEKS
     Route: 042
  2. SORAFENIB [Concomitant]
     Indication: ACRAL LENTIGINOUS MELANOMA STAGE UNSPECIFIED
     Dosage: SORAFENIB 800 MG/DAY
     Route: 048
  3. CISPLATIN [Concomitant]
     Indication: ACRAL LENTIGINOUS MELANOMA STAGE UNSPECIFIED
     Dosage: CISPLATIN 50 MG/M2 EVERY 3 WEEKS
     Route: 042

REACTIONS (1)
  - CYSTOID MACULAR OEDEMA [None]
